FAERS Safety Report 25605059 (Version 1)
Quarter: 2025Q3

REPORT INFORMATION
  Report Type: Spontaneous
  Country: KR (occurrence: KR)
  Receive Date: 20250725
  Receipt Date: 20250725
  Transmission Date: 20251020
  Serious: Yes (Hospitalization, Other)
  Sender: NOVITIUM PHARMA
  Company Number: KR-NOVITIUMPHARMA-2025KRNVP01765

PATIENT
  Age: 83 Year
  Sex: Male

DRUGS (7)
  1. RIFABUTIN [Suspect]
     Active Substance: RIFABUTIN
     Indication: Atypical mycobacterial infection
     Route: 048
  2. RIFABUTIN [Suspect]
     Active Substance: RIFABUTIN
     Indication: Tuberculosis
  3. VORICONAZOLE [Concomitant]
     Active Substance: VORICONAZOLE
  4. VORICONAZOLE [Concomitant]
     Active Substance: VORICONAZOLE
  5. AZITHROMYCIN [Concomitant]
     Active Substance: AZITHROMYCIN
     Indication: Product used for unknown indication
  6. AMIODARONE [Concomitant]
     Active Substance: AMIODARONE
     Indication: Product used for unknown indication
  7. QUETIAPINE [Concomitant]
     Active Substance: QUETIAPINE
     Indication: Product used for unknown indication

REACTIONS (5)
  - Hallucination, visual [Unknown]
  - Delirium [Unknown]
  - Electrocardiogram QT prolonged [Unknown]
  - Hypoaesthesia [Unknown]
  - Drug interaction [Unknown]
